FAERS Safety Report 5311658-7 (Version None)
Quarter: 2007Q2

REPORT INFORMATION
  Report Type: 
  Country: None (occurrence: None)
  Receive Date: 20070430
  Receipt Date: 20060508
  Transmission Date: 20071010
  Serious: No
  Sender: FDA-Public Use
  Company Number: 2006UW08995

PATIENT
  Age: 61 Year
  Sex: Female
  Weight: 70.3 kg

DRUGS (8)
  1. ZOMIG [Suspect]
     Indication: MIGRAINE
     Dosage: 4-9 5 MG TABLETS/MONTH
     Route: 048
     Dates: start: 19960101
  2. BUTALBITAL [Concomitant]
  3. INDERAL [Concomitant]
  4. NEURONTIN [Concomitant]
  5. EVISTA [Concomitant]
  6. SOMA [Concomitant]
  7. CELEBREX [Concomitant]
  8. DIFLUCAN [Concomitant]

REACTIONS (1)
  - PAIN [None]
